FAERS Safety Report 22230025 (Version 1)
Quarter: 2023Q2

REPORT INFORMATION
  Report Type: Spontaneous
  Country: US (occurrence: None)
  Receive Date: 20230418
  Receipt Date: 20230418
  Transmission Date: 20230722
  Serious: Yes (Other)
  Sender: FDA-Public Use
  Company Number: None

PATIENT
  Age: 57 Year
  Sex: Female
  Weight: 88.9 kg

DRUGS (4)
  1. LEVOTHYROXINE [Suspect]
     Active Substance: LEVOTHYROXINE
     Indication: Hypothyroidism
     Dates: start: 20070803, end: 20080520
  2. CYMBALTA [Concomitant]
     Active Substance: DULOXETINE HYDROCHLORIDE
  3. PHENTERMINE [Concomitant]
     Active Substance: PHENTERMINE
  4. Topamox [Concomitant]

REACTIONS (8)
  - Product substitution issue [None]
  - Therapeutic response changed [None]
  - Fatigue [None]
  - Hot flush [None]
  - Nausea [None]
  - Pruritus [None]
  - Headache [None]
  - Therapeutic product effect incomplete [None]

NARRATIVE: CASE EVENT DATE: 20070403
